FAERS Safety Report 14315859 (Version 2)
Quarter: 2018Q2

REPORT INFORMATION
  Report Type: Report from Study
  Country: CL (occurrence: CL)
  Receive Date: 20171221
  Receipt Date: 20180409
  Transmission Date: 20180711
  Serious: Yes (Death, Hospitalization, Other)
  Sender: FDA-Public Use
  Company Number: CL-BRISTOL-MYERS SQUIBB COMPANY-BMS-2017-116778

PATIENT
  Sex: Female

DRUGS (1)
  1. NIVOLUMAB [Suspect]
     Active Substance: NIVOLUMAB
     Indication: MALIGNANT MELANOMA
     Dosage: 240 MG, UNK
     Route: 042
     Dates: start: 20171109

REACTIONS (4)
  - Death [Fatal]
  - Metastases to kidney [Unknown]
  - Renal failure [Unknown]
  - Pulmonary congestion [Unknown]
